FAERS Safety Report 8305440-6 (Version None)
Quarter: 2012Q2

REPORT INFORMATION
  Report Type: 
  Country: None (occurrence: None)
  Receive Date: 20120423
  Receipt Date: 20120413
  Transmission Date: 20120825
  Serious: Yes (Hospitalization)
  Sender: FDA-Public Use
  Company Number: JP-VERTEX PHARMACEUTICALS INC.-AE-2012-001306

PATIENT
  Age: 56 Year
  Sex: Male

DRUGS (7)
  1. CARBIMAZOLE [Concomitant]
     Route: 048
  2. TELAVIC (TELAPREVIR) [Suspect]
     Indication: HEPATITIS C
     Route: 048
     Dates: start: 20120118, end: 20120119
  3. GLYBURIDE [Concomitant]
     Route: 048
  4. RIBAVIRIN [Concomitant]
     Indication: HEPATITIS C
     Route: 048
     Dates: start: 20120118
  5. PEGINTERFERON ALFA-2B [Concomitant]
     Indication: HEPATITIS C
     Route: 058
     Dates: start: 20120118
  6. PROTEASE INHIBITOR [Concomitant]
  7. NEO-MERCAZOLE TAB [Concomitant]
     Route: 048

REACTIONS (2)
  - PYREXIA [None]
  - DRUG ERUPTION [None]
